FAERS Safety Report 17192324 (Version 2)
Quarter: 2020Q1

REPORT INFORMATION
  Report Type: Spontaneous
  Country: DE (occurrence: DE)
  Receive Date: 20191223
  Receipt Date: 20200205
  Transmission Date: 20200409
  Serious: Yes (Hospitalization, Other)
  Sender: FDA-Public Use
  Company Number: NVSC2019DE071705

PATIENT
  Sex: Female

DRUGS (3)
  1. METHOTREXATE. [Suspect]
     Active Substance: METHOTREXATE
     Indication: RHEUMATOID ARTHRITIS
     Dosage: 20 MG, QW
     Route: 065
  2. ABATACEPT [Suspect]
     Active Substance: ABATACEPT
     Indication: RHEUMATOID ARTHRITIS
     Dosage: 125 MG, QW (LAST ADMINISTERED)
     Route: 058
     Dates: end: 20190207
  3. ABATACEPT [Suspect]
     Active Substance: ABATACEPT
     Dosage: 125 MG, QW (RESTARTED)
     Route: 058
     Dates: end: 20190408

REACTIONS (3)
  - Hypertonia [Not Recovered/Not Resolved]
  - Device related infection [Recovered/Resolved]
  - Septic arthritis streptobacillus [Recovered/Resolved]

NARRATIVE: CASE EVENT DATE: 20190109
